FAERS Safety Report 5758573-2 (Version None)
Quarter: 2008Q2

REPORT INFORMATION
  Report Type: 
  Country: None (occurrence: None)
  Receive Date: 20080604
  Receipt Date: 20080530
  Transmission Date: 20081010
  Serious: Yes (Death)
  Sender: FDA-Public Use
  Company Number: A0731220A

PATIENT
  Sex: Male
  Weight: 60 kg

DRUGS (2)
  1. SERETIDE [Suspect]
     Route: 055
     Dates: start: 20040101, end: 20080507
  2. UNSPECIFIED MEDICATIONS [Concomitant]

REACTIONS (1)
  - CARDIAC ARREST [None]
